FAERS Safety Report 4651807-7 (Version None)
Quarter: 2005Q2

REPORT INFORMATION
  Report Type: 
  Country: None (occurrence: None)
  Receive Date: 20050502
  Receipt Date: 20050419
  Transmission Date: 20051028
  Serious: Yes (Hospitalization, Other)
  Sender: FDA-Public Use
  Company Number: HQWYE173420APR05

PATIENT
  Age: 64 Year
  Sex: Male

DRUGS (18)
  1. RAPAMUNE [Suspect]
     Indication: PROPHYLAXIS AGAINST TRANSPLANT REJECTION
     Dosage: 5 MG 1X PER 1 DAY, ORAL
     Route: 048
     Dates: start: 20050121
  2. RAPUMUNE (SIROLIMUS, TABLET) [Suspect]
  3. CELLCEPT [Suspect]
     Indication: PROPHYLAXIS AGAINST TRANSPLANT REJECTION
     Dosage: 1 G 2 X PER 1 DAY
     Dates: start: 20050121
  4. PREDNISONE [Suspect]
     Indication: PROPHYLAXIS AGAINST TRANSPLANT REJECTION
     Dosage: 7 MG DAILY AND TAPERING
     Dates: start: 20050122
  5. BACTRIM [Concomitant]
  6. PROTONIX [Concomitant]
  7. MULTIVITAMINS, PLAIN (MULTIVITAMINS, PLAIN) [Concomitant]
  8. NORVASC [Concomitant]
  9. CLONIDINE [Concomitant]
  10. METOPROLOL TARTRATE [Concomitant]
  11. ZOCOR [Concomitant]
  12. SODIUM BICARBONATE IN PLASTIC CONTAINER [Concomitant]
  13. SYNTHROID [Concomitant]
  14. LEXAPRO [Concomitant]
  15. ACTOS [Concomitant]
  16. NEUTRA-PHOS (POTASSIUM PHOSPHATE DIBASIC/POTASSIUM PHOSPHATE MONOBASIC [Concomitant]
  17. LANTUS [Concomitant]
  18. NOVOLOG [Concomitant]

REACTIONS (9)
  - ANAEMIA [None]
  - COMPUTERISED TOMOGRAM ABNORMAL [None]
  - CULTURE WOUND POSITIVE [None]
  - IMMUNOSUPPRESSION [None]
  - LABORATORY TEST ABNORMAL [None]
  - PSEUDOMONAS INFECTION [None]
  - PYREXIA [None]
  - STAPHYLOCOCCAL INFECTION [None]
  - WOUND DRAINAGE [None]
